FAERS Safety Report 17628270 (Version 5)
Quarter: 2021Q3

REPORT INFORMATION
  Report Type: Report from Study
  Country: FR (occurrence: FR)
  Receive Date: 20200406
  Receipt Date: 20210918
  Transmission Date: 20211014
  Serious: Yes (Death, Other)
  Sender: FDA-Public Use
  Company Number: FR-CELLTRION INC.-2020FR021119

PATIENT

DRUGS (45)
  1. VENCLYXTO [Suspect]
     Active Substance: VENETOCLAX
     Dosage: UNK
     Route: 048
     Dates: start: 20191231, end: 20200106
  2. HEMIGOXINE [Concomitant]
     Active Substance: DIGOXIN
     Indication: ARRHYTHMIA
     Dosage: UNK
     Dates: start: 2013
  3. SPASFON [Concomitant]
     Indication: GASTROINTESTINAL DISORDER PROPHYLAXIS
     Dosage: UNK
     Dates: start: 20191217
  4. ZOPICLONE [Concomitant]
     Active Substance: ZOPICLONE
     Dosage: UNK
     Dates: start: 20191230, end: 20191230
  5. VENCLYXTO [Suspect]
     Active Substance: VENETOCLAX
     Dosage: UNK
     Route: 048
     Dates: start: 20191210, end: 20191216
  6. VENCLYXTO [Suspect]
     Active Substance: VENETOCLAX
     Dosage: UNK
     Route: 048
     Dates: start: 20191210, end: 20191216
  7. VENCLYXTO [Suspect]
     Active Substance: VENETOCLAX
     Dosage: UNK
     Route: 048
     Dates: start: 20191231, end: 20200106
  8. VENCLYXTO [Suspect]
     Active Substance: VENETOCLAX
     Dosage: UNK
     Route: 048
     Dates: start: 20191231, end: 20200106
  9. COUMADINE [Concomitant]
     Active Substance: WARFARIN SODIUM
     Indication: ARRHYTHMIA
     Dosage: UNK
  10. LORATADINE. [Concomitant]
     Active Substance: LORATADINE
     Indication: ALLERGY PROPHYLAXIS
     Dosage: UNK
     Dates: start: 20200122, end: 20200122
  11. MOVICOL [Concomitant]
     Active Substance: POLYETHYLENE GLYCOL 3350\POTASSIUM CHLORIDE\SODIUM BICARBONATE\SODIUM CHLORIDE
     Indication: CONSTIPATION PROPHYLAXIS
     Dosage: UNK
     Dates: start: 20200219
  12. VENCLYXTO [Suspect]
     Active Substance: VENETOCLAX
     Dosage: UNK
     Route: 048
     Dates: start: 20191217, end: 20191223
  13. VENCLYXTO [Suspect]
     Active Substance: VENETOCLAX
     Dosage: UNK
     Route: 048
     Dates: start: 20191224, end: 20191230
  14. VENCLYXTO [Suspect]
     Active Substance: VENETOCLAX
     Dosage: UNK
     Route: 048
     Dates: start: 20200107, end: 20200915
  15. VENCLYXTO [Suspect]
     Active Substance: VENETOCLAX
     Dosage: UNK
     Route: 048
     Dates: start: 20200916, end: 20210210
  16. LANSOYL [Concomitant]
     Active Substance: MINERAL OIL
     Indication: CONSTIPATION PROPHYLAXIS
     Dosage: UNK
     Dates: start: 20200219
  17. ZYMAD [Concomitant]
     Active Substance: CHOLECALCIFEROL
     Indication: VITAMIN SUPPLEMENTATION
     Dosage: UNK
     Dates: start: 2019
  18. VENCLYXTO [Suspect]
     Active Substance: VENETOCLAX
     Indication: CHRONIC LYMPHOCYTIC LEUKAEMIA
     Dosage: UNK
     Route: 048
     Dates: start: 20191210, end: 20191216
  19. VENCLYXTO [Suspect]
     Active Substance: VENETOCLAX
     Dosage: UNK
     Route: 048
     Dates: start: 20200916, end: 20210210
  20. BISOPROLOL [Concomitant]
     Active Substance: BISOPROLOL
     Indication: ATRIAL FIBRILLATION
     Dosage: UNK
  21. EFFEXOR [Concomitant]
     Active Substance: VENLAFAXINE HYDROCHLORIDE
     Indication: DEPRESSION
     Dosage: UNK
     Dates: start: 2019
  22. BACTRIM [Concomitant]
     Active Substance: SULFAMETHOXAZOLE\TRIMETHOPRIM
     Indication: INFECTION PROPHYLAXIS
     Dosage: UNK
     Dates: start: 20200123
  23. VENCLYXTO [Suspect]
     Active Substance: VENETOCLAX
     Dosage: UNK
     Route: 048
     Dates: start: 20191217, end: 20191223
  24. VENCLYXTO [Suspect]
     Active Substance: VENETOCLAX
     Dosage: UNK
     Route: 048
     Dates: start: 20191224, end: 20191230
  25. VENCLYXTO [Suspect]
     Active Substance: VENETOCLAX
     Dosage: UNK
     Route: 048
     Dates: start: 20200916, end: 20210210
  26. COUMADINE [Concomitant]
     Active Substance: WARFARIN SODIUM
     Indication: ATRIAL FIBRILLATION
     Dosage: UNK
     Dates: start: 2013
  27. FASTURTEC [Concomitant]
     Active Substance: RASBURICASE
     Indication: HYPERURICAEMIA
     Dosage: UNK
     Dates: start: 20191223, end: 20191223
  28. LEDERFOLINE [Concomitant]
     Active Substance: LEUCOVORIN CALCIUM
     Indication: ANAEMIA PROPHYLAXIS
     Dosage: UNK
     Dates: start: 20200123
  29. VENCLYXTO [Suspect]
     Active Substance: VENETOCLAX
     Dosage: UNK
     Route: 048
     Dates: start: 20191224, end: 20191230
  30. METHYLPREDNISOLONE. [Concomitant]
     Active Substance: METHYLPREDNISOLONE
     Indication: ALLERGY PROPHYLAXIS
     Dosage: UNK
     Dates: start: 20200122, end: 20200122
  31. VALACYCLOVIR [Concomitant]
     Active Substance: VALACYCLOVIR HYDROCHLORIDE
     Indication: INFECTION PROPHYLAXIS
     Dosage: UNK
     Dates: start: 20200122
  32. SIMVASTATINE [Concomitant]
     Active Substance: SIMVASTATIN
     Indication: HYPERTENSION
     Dosage: UNK
     Dates: start: 2013
  33. VENCLYXTO [Suspect]
     Active Substance: VENETOCLAX
     Dosage: UNK
     Route: 048
     Dates: start: 20200107, end: 20200915
  34. BISOPROLOL [Concomitant]
     Active Substance: BISOPROLOL
     Indication: ARRHYTHMIA
     Dosage: UNK
     Dates: start: 2013
  35. ZOPICLONE [Concomitant]
     Active Substance: ZOPICLONE
     Dosage: UNK
     Dates: start: 20191217, end: 20191217
  36. LASILIX [Concomitant]
     Active Substance: FUROSEMIDE
     Indication: PULMONARY ARTERIAL HYPERTENSION
     Dosage: UNK
     Dates: start: 2019
  37. INEXIUM [Concomitant]
     Active Substance: ESOMEPRAZOLE
     Indication: PROPHYLAXIS
     Dosage: UNK
     Dates: start: 2013
  38. RITUXIMAB. [Suspect]
     Active Substance: RITUXIMAB
     Indication: CHRONIC LYMPHOCYTIC LEUKAEMIA
     Dosage: UNK
     Route: 065
     Dates: start: 20200122
  39. VENCLYXTO [Suspect]
     Active Substance: VENETOCLAX
     Dosage: UNK
     Route: 048
     Dates: start: 20191217, end: 20191223
  40. VENCLYXTO [Suspect]
     Active Substance: VENETOCLAX
     Dosage: UNK
     Route: 048
     Dates: start: 20200107, end: 20200915
  41. ALLOPURINOL. [Concomitant]
     Active Substance: ALLOPURINOL
     Indication: PROPHYLAXIS
     Dosage: UNK
     Dates: start: 20191224
  42. HEMIGOXINE [Concomitant]
     Active Substance: DIGOXIN
     Indication: ATRIAL FIBRILLATION
     Dosage: UNK
  43. ZOPICLONE [Concomitant]
     Active Substance: ZOPICLONE
     Indication: PROPHYLAXIS
     Dosage: UNK
     Dates: start: 20191210, end: 20191210
  44. REFRESH CELLUVISC [Concomitant]
     Active Substance: CARBOXYMETHYLCELLULOSE SODIUM
     Indication: PROPHYLAXIS
     Dosage: UNK
     Dates: start: 20200123
  45. PARACETAMOL [Concomitant]
     Active Substance: ACETAMINOPHEN
     Indication: OSTEOARTHRITIS
     Dosage: UNK
     Dates: start: 2013

REACTIONS (17)
  - Haematoma [Fatal]
  - Diarrhoea [Fatal]
  - Cytopenia [Fatal]
  - Neutropenia [Fatal]
  - Hyperuricaemia [Fatal]
  - Alveolar lung disease [Fatal]
  - Pain in jaw [Fatal]
  - Lung disorder [Fatal]
  - Neutropenia [Fatal]
  - Asthenia [Fatal]
  - COVID-19 pneumonia [Fatal]
  - Peripheral venous disease [Fatal]
  - Salivary gland pain [Fatal]
  - Oedema peripheral [Fatal]
  - Hyperuricaemia [Fatal]
  - Hyperuricaemia [Fatal]
  - Drug hypersensitivity [Fatal]

NARRATIVE: CASE EVENT DATE: 201912
